FAERS Safety Report 7463492-X (Version None)
Quarter: 2011Q2

REPORT INFORMATION
  Report Type: 
  Country: None (occurrence: None)
  Receive Date: 20110506
  Receipt Date: 20110428
  Transmission Date: 20111010
  Serious: Yes (Other)
  Sender: FDA-Public Use
  Company Number: PHHY2011US32353

PATIENT
  Sex: Female

DRUGS (1)
  1. GILENYA [Suspect]
     Indication: MULTIPLE SCLEROSIS RELAPSE
     Dosage: 0.5 MG, DAILY
     Route: 048
     Dates: start: 20110413

REACTIONS (7)
  - HEADACHE [None]
  - MIGRAINE [None]
  - PHOTOPHOBIA [None]
  - LACERATION [None]
  - HEAD INJURY [None]
  - PAIN [None]
  - FALL [None]
